FAERS Safety Report 21055090 (Version 2)
Quarter: 2022Q3

REPORT INFORMATION
  Report Type: Report from Study
  Country: US (occurrence: US)
  Receive Date: 20220707
  Receipt Date: 20220708
  Transmission Date: 20221026
  Serious: Yes (Death, Hospitalization, Other)
  Sender: FDA-Public Use
  Company Number: US-ABBVIE-22K-163-4449776-00

PATIENT
  Age: 89 Year
  Sex: Male

DRUGS (1)
  1. IMBRUVICA [Suspect]
     Active Substance: IBRUTINIB
     Indication: Chronic lymphocytic leukaemia
     Route: 048
     Dates: start: 20180316

REACTIONS (4)
  - Death [Fatal]
  - COVID-19 [Unknown]
  - Leukaemia [Unknown]
  - Pneumoconiosis [Unknown]

NARRATIVE: CASE EVENT DATE: 20220625
